FAERS Safety Report 8368763-0 (Version None)
Quarter: 2012Q2

REPORT INFORMATION
  Report Type: 
  Country: None (occurrence: None)
  Receive Date: 20120518
  Receipt Date: 20120511
  Transmission Date: 20120825
  Serious: No
  Sender: FDA-Public Use
  Company Number: US-BIOGENIDEC-2012BI016916

PATIENT
  Age: 38 Year
  Sex: Female

DRUGS (2)
  1. TYSABRI [Suspect]
     Indication: MULTIPLE SCLEROSIS
     Route: 042
     Dates: start: 20100712
  2. AVONEX [Concomitant]
     Indication: MULTIPLE SCLEROSIS
     Route: 030

REACTIONS (9)
  - MALAISE [None]
  - BLINDNESS [None]
  - SINUSITIS [None]
  - PYREXIA [None]
  - EAR INFECTION [None]
  - MUSCLE TIGHTNESS [None]
  - FALL [None]
  - FACIAL NEURALGIA [None]
  - HEADACHE [None]
